FAERS Safety Report 9380739 (Version 1)
Quarter: 2013Q3

REPORT INFORMATION
  Report Type: Report from Study
  Country: HU (occurrence: HU)
  Receive Date: 20130702
  Receipt Date: 20130702
  Transmission Date: 20140515
  Serious: Yes (Hospitalization)
  Sender: FDA-Public Use
  Company Number: HU-PFIZER INC-2013186178

PATIENT
  Age: 38 Year
  Sex: Female

DRUGS (2)
  1. EXEMESTANE [Suspect]
     Indication: BREAST CANCER
     Dosage: 25 MG, UNK
     Route: 048
     Dates: start: 20061024
  2. TRIPTORELIN PAMOATE [Suspect]
     Indication: BREAST CANCER
     Dosage: 3.75 MG, UNK
     Route: 030
     Dates: start: 20060901

REACTIONS (1)
  - Uterine haemorrhage [Recovered/Resolved]
